FAERS Safety Report 9425227 (Version 1)
Quarter: 2013Q3

REPORT INFORMATION
  Report Type: Spontaneous
  Country: MX (occurrence: None)
  Receive Date: 20130725
  Receipt Date: 20130725
  Transmission Date: 20140515
  Serious: Yes (Other)
  Sender: FDA-Public Use
  Company Number: ENTC2013-0268

PATIENT
  Age: 65 Year
  Sex: Male

DRUGS (8)
  1. STALEVO (LEVODOPA, CARBIDOPA, ENTACAPONE) [Suspect]
     Indication: PARKINSON^S DISEASE
     Dosage: 3 DF (100/25/200 MG)
     Route: 048
  2. RIVOTRIL [Concomitant]
  3. AKINETON [Concomitant]
  4. LOBIVON [Concomitant]
  5. ANAPSIQUE [Concomitant]
  6. GABANTIN [Concomitant]
  7. VITAMIN E [Concomitant]
  8. ASPIRIN PROTECT [Concomitant]

REACTIONS (11)
  - Aphasia [None]
  - Coordination abnormal [None]
  - Fall [None]
  - Choking [None]
  - Blood triglycerides increased [None]
  - Blood cholesterol increased [None]
  - Dyspnoea [None]
  - Prostatic disorder [None]
  - Mobility decreased [None]
  - Cough [None]
  - Activities of daily living impaired [None]
